FAERS Safety Report 7135253-2 (Version None)
Quarter: 2010Q4

REPORT INFORMATION
  Report Type: 
  Country: None (occurrence: None)
  Receive Date: 20101203
  Receipt Date: 20101123
  Transmission Date: 20110411
  Serious: Yes (Hospitalization)
  Sender: FDA-Public Use
  Company Number: A0793832A

PATIENT
  Age: 69 Year
  Sex: Male
  Weight: 104.5 kg

DRUGS (5)
  1. AVANDIA [Suspect]
     Route: 048
  2. DIOVAN [Concomitant]
  3. FLOMAX [Concomitant]
  4. GLIPIZIDE [Concomitant]
  5. BYETTA [Concomitant]

REACTIONS (3)
  - CARDIAC DISORDER [None]
  - CARDIAC FAILURE CONGESTIVE [None]
  - CORONARY ARTERY DISEASE [None]
